FAERS Safety Report 9129000 (Version 1)
Quarter: 2013Q1

REPORT INFORMATION
  Report Type: Spontaneous
  Country: CA (occurrence: CA)
  Receive Date: 20130228
  Receipt Date: 20130228
  Transmission Date: 20140127
  Serious: Yes (Life-Threatening, Hospitalization)
  Sender: FDA-Public Use
  Company Number: CA-ROXANE LABORATORIES, INC.-2013-RO-00290RO

PATIENT
  Age: 59 Year
  Sex: Female

DRUGS (3)
  1. QUETIAPINE FUMARATE [Suspect]
     Indication: HALLUCINATION
  2. CARBIDOPA-LEVODOPA [Suspect]
     Indication: PARKINSON^S DISEASE
  3. OXAZEPAM [Suspect]
     Indication: PARKINSON^S DISEASE

REACTIONS (3)
  - Acute hepatic failure [Recovered/Resolved with Sequelae]
  - Encephalopathy [Recovered/Resolved with Sequelae]
  - Drug-induced liver injury [Unknown]
